FAERS Safety Report 11430445 (Version 1)
Quarter: 2015Q3

REPORT INFORMATION
  Report Type: Spontaneous
  Country: US (occurrence: US)
  Receive Date: 20150828
  Receipt Date: 20150828
  Transmission Date: 20151125
  Serious: No
  Sender: FDA-Public Use
  Company Number: US-ROCHE-1203305

PATIENT
  Sex: Female

DRUGS (3)
  1. PEGASYS [Suspect]
     Active Substance: PEGINTERFERON ALFA-2A
     Indication: CHRONIC HEPATITIS C
     Route: 058
     Dates: start: 20130316
  2. TELAPREVIR [Suspect]
     Active Substance: TELAPREVIR
     Indication: CHRONIC HEPATITIS C
     Route: 065
     Dates: start: 20130316, end: 20130318
  3. RIBAVIRIN. [Suspect]
     Active Substance: RIBAVIRIN
     Indication: CHRONIC HEPATITIS C
     Dosage: IN DIVIDED DOSES
     Route: 048
     Dates: start: 20130316

REACTIONS (11)
  - Dyspnoea [Unknown]
  - Dry skin [Unknown]
  - Dysphagia [Unknown]
  - Palpitations [Unknown]
  - Vomiting [Unknown]
  - Anger [Unknown]
  - Dizziness [Unknown]
  - Anxiety [Unknown]
  - Rash [Unknown]
  - Pruritus [Recovering/Resolving]
  - Agitation [Unknown]
